FAERS Safety Report 5856426-2 (Version None)
Quarter: 2008Q3

REPORT INFORMATION
  Report Type: 
  Country: None (occurrence: None)
  Receive Date: 20080825
  Receipt Date: 20080623
  Transmission Date: 20090109
  Serious: No
  Sender: FDA-Public Use
  Company Number: A0706077A

PATIENT
  Age: 75 Year
  Sex: Female
  Weight: 62.3 kg

DRUGS (10)
  1. VERAMYST [Suspect]
     Dosage: 1SPR PER DAY
     Route: 045
     Dates: start: 20071001
  2. AUGMENTIN '125' [Suspect]
     Route: 048
  3. SECTRAL [Concomitant]
  4. BUMEX [Concomitant]
  5. LORAZEPAM [Concomitant]
  6. TRAZODONE HCL [Concomitant]
  7. LIBRAX [Concomitant]
  8. HYOSCYAMINE [Concomitant]
  9. THYROXIN [Concomitant]
  10. SIMVASTATIN [Concomitant]

REACTIONS (4)
  - DRUG INEFFECTIVE [None]
  - DYSPNOEA [None]
  - NASAL CONGESTION [None]
  - SINUSITIS [None]
